FAERS Safety Report 14452242 (Version 1)
Quarter: 2018Q1

REPORT INFORMATION
  Report Type: Spontaneous
  Country: IT (occurrence: IT)
  Receive Date: 20180129
  Receipt Date: 20180129
  Transmission Date: 20180509
  Serious: Yes (Other)
  Sender: FDA-Public Use
  Company Number: IT-BAYER-2018-011268

PATIENT
  Age: 87 Year
  Sex: Male

DRUGS (4)
  1. HALCION [Concomitant]
     Active Substance: TRIAZOLAM
     Dosage: UNK
  2. AVODART [Concomitant]
     Active Substance: DUTASTERIDE
     Dosage: UNK
  3. CARDIOASPIRIN 100 MG [Suspect]
     Active Substance: ASPIRIN
     Indication: THROMBOSIS PROPHYLAXIS
     Dosage: 100 MG, UNK
     Route: 048
     Dates: start: 20170101, end: 20170502
  4. CITALOPRAM [Concomitant]
     Active Substance: CITALOPRAM HYDROBROMIDE
     Dosage: UNK

REACTIONS (3)
  - Melaena [Recovering/Resolving]
  - Vomiting [Recovering/Resolving]
  - Syncope [Recovering/Resolving]

NARRATIVE: CASE EVENT DATE: 20170501
